FAERS Safety Report 13755681 (Version 1)
Quarter: 2017Q3

REPORT INFORMATION
  Report Type: Spontaneous
  Country: US (occurrence: US)
  Receive Date: 20170714
  Receipt Date: 20170714
  Transmission Date: 20171127
  Serious: Yes (Hospitalization)
  Sender: FDA-Public Use
  Company Number: None

PATIENT
  Age: 66 Year
  Sex: Female

DRUGS (23)
  1. ALPRAZOLAM. [Concomitant]
     Active Substance: ALPRAZOLAM
  2. ESTRADIOL. [Concomitant]
     Active Substance: ESTRADIOL
  3. HYDROCO/APAP [Concomitant]
     Active Substance: ACETAMINOPHEN\HYDROCODONE
  4. CODEINE/APAP [Concomitant]
     Active Substance: ACETAMINOPHEN\CODEINE PHOSPHATE
  5. VALACYCLOVIR [Concomitant]
     Active Substance: VALACYCLOVIR HYDROCHLORIDE
  6. ZOLPIDEM ER [Concomitant]
     Active Substance: ZOLPIDEM\ZOLPIDEM TARTRATE
  7. CALCIUM [Concomitant]
     Active Substance: CALCIUM
  8. OMEPRAZOLE. [Concomitant]
     Active Substance: OMEPRAZOLE
  9. CARVEDILOL. [Concomitant]
     Active Substance: CARVEDILOL
  10. VENTOLIN HFA AER [Concomitant]
  11. RANITIDINE. [Concomitant]
     Active Substance: RANITIDINE
  12. BENZONATATE. [Concomitant]
     Active Substance: BENZONATATE
  13. CITALOPRAM [Concomitant]
     Active Substance: CITALOPRAM HYDROBROMIDE
  14. FLUTICASONE. [Concomitant]
     Active Substance: FLUTICASONE
  15. ONDANSETRON [Concomitant]
     Active Substance: ONDANSETRON
  16. TARCEVA [Suspect]
     Active Substance: ERLOTINIB HYDROCHLORIDE
     Indication: BRONCHIAL CARCINOMA
     Route: 048
     Dates: start: 20170620
  17. BACLOFEN. [Concomitant]
     Active Substance: BACLOFEN
  18. PROGESTERONE. [Concomitant]
     Active Substance: PROGESTERONE
  19. CLOBETASOL CRE [Concomitant]
  20. CLINDAMYCIN. [Concomitant]
     Active Substance: CLINDAMYCIN
  21. MAGNESIUM [Concomitant]
     Active Substance: MAGNESIUM
  22. GABAPENTIN. [Concomitant]
     Active Substance: GABAPENTIN
  23. LEVOFLOXACIN. [Concomitant]
     Active Substance: LEVOFLOXACIN

REACTIONS (4)
  - Hypotension [None]
  - Cardiac disorder [None]
  - Chest discomfort [None]
  - Limb discomfort [None]

NARRATIVE: CASE EVENT DATE: 20170625
